APPROVED DRUG PRODUCT: METHIMAZOLE
Active Ingredient: METHIMAZOLE
Strength: 10MG
Dosage Form/Route: TABLET;ORAL
Application: A040870 | Product #002
Applicant: SUN PHARMACEUTICAL INDUSTRIES INC
Approved: Sep 25, 2007 | RLD: No | RS: No | Type: DISCN